FAERS Safety Report 7996853-0 (Version None)
Quarter: 2011Q4

REPORT INFORMATION
  Report Type: 
  Country: None (occurrence: None)
  Receive Date: 20111221
  Receipt Date: 20111212
  Transmission Date: 20120403
  Serious: Yes (Other)
  Sender: FDA-Public Use
  Company Number: US-BAYER-2011-119605

PATIENT
  Age: 27 Year
  Sex: Female

DRUGS (1)
  1. YAZ [Suspect]
     Dosage: UNK
     Dates: start: 20071101, end: 20091001

REACTIONS (7)
  - POST CHOLECYSTECTOMY SYNDROME [None]
  - GALLBLADDER DISORDER [None]
  - ANHEDONIA [None]
  - ANXIETY [None]
  - PAIN [None]
  - INJURY [None]
  - GASTROINTESTINAL DISORDER [None]
